FAERS Safety Report 7644260-2 (Version None)
Quarter: 2011Q3

REPORT INFORMATION
  Report Type: 
  Country: None (occurrence: None)
  Receive Date: 20110729
  Receipt Date: 20110722
  Transmission Date: 20111222
  Serious: Yes (Other)
  Sender: FDA-Public Use
  Company Number: PHHY2011US55738

PATIENT
  Sex: Male

DRUGS (19)
  1. AMLODIPINE BESYLATE [Concomitant]
  2. CRESTOR [Concomitant]
  3. FLEXERIL [Concomitant]
  4. MYFORTIC [Suspect]
     Dosage: 360 MG, BID
     Route: 048
  5. OSCAL [Concomitant]
  6. PRILOSEC [Concomitant]
  7. PLAVIX [Concomitant]
  8. AMBIEN [Concomitant]
  9. TOPROL-XL [Concomitant]
  10. KETOCONAZOLE [Concomitant]
  11. ULTRAM [Concomitant]
  12. MYFORTIC [Suspect]
     Indication: RENAL TRANSPLANT
     Dosage: 720 MG, BID
     Route: 048
     Dates: start: 20101229
  13. ASPIRIN [Concomitant]
  14. PROGRAF [Concomitant]
  15. CENTRUM [Concomitant]
  16. PREDNISONE [Concomitant]
  17. TYLENOL-500 [Concomitant]
  18. DCN-WO [Concomitant]
  19. SILVER [Concomitant]

REACTIONS (1)
  - CEREBROVASCULAR ACCIDENT [None]
